FAERS Safety Report 24303366 (Version 1)
Quarter: 2024Q3

REPORT INFORMATION
  Report Type: Spontaneous
  Country: US (occurrence: None)
  Receive Date: 20240910
  Receipt Date: 20240910
  Transmission Date: 20241017
  Serious: Yes (Hospitalization)
  Sender: Public
  Company Number: None

PATIENT
  Age: 36 Year
  Sex: Male
  Weight: 79.4 kg

DRUGS (3)
  1. CYTARABINE [Suspect]
     Active Substance: CYTARABINE
     Dates: end: 20240822
  2. METHOTREXATE [Suspect]
     Active Substance: METHOTREXATE
     Dates: end: 20240819
  3. PONATINIB HYDROCHLORIDE [Suspect]
     Active Substance: PONATINIB HYDROCHLORIDE
     Dates: end: 20240822

REACTIONS (5)
  - Febrile neutropenia [None]
  - Gastrointestinal disorder [None]
  - Headache [None]
  - Diarrhoea [None]
  - Dehydration [None]

NARRATIVE: CASE EVENT DATE: 20240831
